FAERS Safety Report 7388096-9 (Version None)
Quarter: 2011Q2

REPORT INFORMATION
  Report Type: 
  Country: None (occurrence: None)
  Receive Date: 20110401
  Receipt Date: 20110318
  Transmission Date: 20111010
  Serious: Yes (Hospitalization, Other)
  Sender: FDA-Public Use
  Company Number: US-ELI_LILLY_AND_COMPANY-US201101002510

PATIENT
  Age: 81 Year
  Sex: Female

DRUGS (1)
  1. FORTEO [Suspect]
     Indication: OSTEOPOROSIS
     Dosage: 20UG DAILY
     Route: 058

REACTIONS (7)
  - MALAISE [None]
  - HEART RATE INCREASED [None]
  - ARTHRALGIA [None]
  - MYOCARDIAL INFARCTION [None]
  - THERAPEUTIC PROCEDURE [None]
  - DYSPNOEA [None]
  - ASTHENIA [None]
